FAERS Safety Report 9449234 (Version 1)
Quarter: 2013Q3

REPORT INFORMATION
  Report Type: Spontaneous
  Country: DE (occurrence: DE)
  Receive Date: 20130808
  Receipt Date: 20130808
  Transmission Date: 20140515
  Serious: Yes (Life-Threatening, Hospitalization)
  Sender: FDA-Public Use
  Company Number: DE-ACTAVIS-2013-14083

PATIENT
  Age: 69 Year
  Sex: Male

DRUGS (1)
  1. DICLOFENAC SODIUM (UNKNOWN) [Suspect]
     Indication: ARTHRALGIA
     Dosage: UNK, UNKNOWN
     Route: 048
     Dates: start: 20130622, end: 20130623

REACTIONS (2)
  - Warm type haemolytic anaemia [Recovering/Resolving]
  - Renal failure acute [Recovering/Resolving]
